FAERS Safety Report 7206364-8 (Version None)
Quarter: 2011Q1

REPORT INFORMATION
  Report Type: 
  Country: None (occurrence: None)
  Receive Date: 20110103
  Receipt Date: 20110103
  Transmission Date: 20110831
  Serious: Yes (Life-Threatening, Hospitalization)
  Sender: FDA-Public Use
  Company Number: PHHO2007DE07105

PATIENT
  Sex: Male
  Weight: 86.5 kg

DRUGS (2)
  1. CERTICAN [Suspect]
     Indication: CONGENITAL CYSTIC KIDNEY DISEASE
     Dosage: UNK
     Route: 048
     Dates: start: 20070314, end: 20070423
  2. BENALAPRIL [Concomitant]

REACTIONS (3)
  - ANGIOEDEMA [None]
  - DYSPNOEA [None]
  - SWOLLEN TONGUE [None]
